FAERS Safety Report 20843477 (Version 1)
Quarter: 2022Q2

REPORT INFORMATION
  Report Type: Spontaneous
  Country: US (occurrence: None)
  Receive Date: 20220517
  Receipt Date: 20220517
  Transmission Date: 20220721
  Serious: No
  Sender: FDA-Public Use
  Company Number: None

PATIENT
  Age: 29 Year
  Sex: Male

DRUGS (1)
  1. PULMOZYME [Suspect]
     Active Substance: DORNASE ALFA
     Indication: Product used for unknown indication
     Dosage: 2.5MG DAILY RESPIRATORY (INHALATION)
     Route: 055
     Dates: start: 2020

REACTIONS (1)
  - Lung transplant [None]

NARRATIVE: CASE EVENT DATE: 20220323
